FAERS Safety Report 20090471 (Version 1)
Quarter: 2021Q4

REPORT INFORMATION
  Report Type: Spontaneous
  Country: HR (occurrence: HR)
  Receive Date: 20211119
  Receipt Date: 20211119
  Transmission Date: 20220303
  Serious: Yes (Hospitalization)
  Sender: FDA-Public Use
  Company Number: HR-MYLANLABS-2021M1084800

PATIENT
  Age: 15 Year
  Sex: Female

DRUGS (2)
  1. ACETAMINOPHEN [Suspect]
     Active Substance: ACETAMINOPHEN
     Indication: Product used for unknown indication
     Dosage: 10 DOSAGE FORM
     Route: 048
  2. ACETAMINOPHEN [Suspect]
     Active Substance: ACETAMINOPHEN
     Indication: Product used for unknown indication
     Dosage: 7 DOSAGE FORM
     Route: 048

REACTIONS (14)
  - Nausea [Recovering/Resolving]
  - Vomiting [Recovering/Resolving]
  - Abdominal pain [Recovering/Resolving]
  - Hepatic enzyme increased [Recovered/Resolved]
  - Suicide attempt [Recovered/Resolved]
  - Toxicity to various agents [Recovered/Resolved]
  - Intentional overdose [Recovered/Resolved]
  - Blood pressure abnormal [Recovering/Resolving]
  - Prothrombin level abnormal [Recovering/Resolving]
  - Blood creatinine abnormal [Recovering/Resolving]
  - Coagulopathy [Recovering/Resolving]
  - Ocular icterus [Recovering/Resolving]
  - Hepatomegaly [Recovering/Resolving]
  - Ammonia increased [Recovering/Resolving]
